FAERS Safety Report 17570681 (Version 2)
Quarter: 2020Q1

REPORT INFORMATION
  Report Type: Spontaneous
  Country: CA (occurrence: CA)
  Receive Date: 20200323
  Receipt Date: 20200327
  Transmission Date: 20200409
  Serious: Yes (Other)
  Sender: FDA-Public Use
  Company Number: CA-CELLTRION INC.-2020CA020704

PATIENT

DRUGS (2)
  1. INFLECTRA [Suspect]
     Active Substance: INFLIXIMAB-DYYB
     Indication: CROHN^S DISEASE
     Dosage: 500 MG, EVERY 6 WEEKS
     Route: 042
     Dates: start: 20191002
  2. METHOTREXATE. [Concomitant]
     Active Substance: METHOTREXATE
     Dosage: 15 MG, WEEKLY
     Route: 048

REACTIONS (5)
  - Fatigue [Unknown]
  - Condition aggravated [Unknown]
  - Hypothyroidism [Unknown]
  - Off label use [Unknown]
  - Haemorrhoidal haemorrhage [Unknown]
